FAERS Safety Report 8773454 (Version 2)
Quarter: 2012Q4

REPORT INFORMATION
  Report Type: 
  Country: US (occurrence: US)
  Receive Date: 20120907
  Receipt Date: 20121018
  Transmission Date: 20130627
  Serious: Yes (Other)
  Sender: FDA-Public Use
  Company Number: US-GLAXOSMITHKLINE-A0875575A

PATIENT
  Age: 84 Year
  Sex: Female

DRUGS (3)
  1. ADVAIR [Suspect]
     Indication: CHRONIC OBSTRUCTIVE PULMONARY DISEASE
     Dosage: 1PUFF Twice per day
     Route: 055
     Dates: start: 2001
  2. ALBUTEROL NEBULIZER [Concomitant]
  3. BLOOD PRESSURE MEDICATION [Concomitant]

REACTIONS (3)
  - Choking [Recovered/Resolved]
  - Drug administration error [Recovered/Resolved]
  - Product quality issue [Recovered/Resolved]
